FAERS Safety Report 9747950 (Version 1)
Quarter: 2013Q4

REPORT INFORMATION
  Report Type: Spontaneous
  Country: US (occurrence: US)
  Receive Date: 20131212
  Receipt Date: 20131212
  Transmission Date: 20140711
  Serious: Yes (Other)
  Sender: FDA-Public Use
  Company Number: US-TEVA-388320USA

PATIENT
  Sex: Female
  Weight: 63.56 kg

DRUGS (1)
  1. PARAGARD 380A [Suspect]
     Indication: CONTRACEPTION
     Route: 015
     Dates: start: 20121219, end: 20130122

REACTIONS (7)
  - Fungal infection [Recovered/Resolved]
  - Pruritus [Recovered/Resolved]
  - Vaginal odour [Recovered/Resolved]
  - Vaginal discharge [Recovered/Resolved]
  - Urinary tract infection [Not Recovered/Not Resolved]
  - Vulvovaginal pain [Recovered/Resolved]
  - Back pain [Recovered/Resolved]
